FAERS Safety Report 25250343 (Version 2)
Quarter: 2025Q3

REPORT INFORMATION
  Report Type: Spontaneous
  Country: JP (occurrence: JP)
  Receive Date: 20250429
  Receipt Date: 20250805
  Transmission Date: 20251020
  Serious: Yes (Death, Hospitalization, Other)
  Sender: MERCK SHARP & DOHME LLC
  Company Number: JP-MSD-M2024-26027

PATIENT
  Age: 73 Year
  Sex: Male

DRUGS (1)
  1. KEYTRUDA [Suspect]
     Active Substance: PEMBROLIZUMAB
     Indication: Non-small cell lung cancer stage IV
     Dosage: DOSE DESCRIPTION : 200 MILLIGRAM, Q3W?DAILY DOSE : 9.4 MILLIGRAM?REGIMEN DOSE : 200  MILLIGRAM
     Route: 042
     Dates: start: 202402, end: 2024

REACTIONS (8)
  - Cerebral infarction [Fatal]
  - Polymyalgia rheumatica [Unknown]
  - Thrombophlebitis migrans [Unknown]
  - Hypothalamo-pituitary disorder [Unknown]
  - Arthralgia [Unknown]
  - Pain [Unknown]
  - Headache [Unknown]
  - Therapy partial responder [Unknown]

NARRATIVE: CASE EVENT DATE: 20240101
